FAERS Safety Report 24359896 (Version 5)
Quarter: 2024Q4

REPORT INFORMATION
  Report Type: Report from Study
  Country: CO (occurrence: CO)
  Receive Date: 20240924
  Receipt Date: 20241129
  Transmission Date: 20250114
  Serious: Yes (Death, Hospitalization, Other)
  Sender: ABBVIE
  Company Number: CO-ABBVIE-5933754

PATIENT
  Age: 83 Year
  Sex: Female
  Weight: 58 kg

DRUGS (3)
  1. VENCLEXTA [Suspect]
     Active Substance: VENETOCLAX
     Indication: Chronic lymphocytic leukaemia
     Dosage: FORM STRENGTH: 100 MILLIGRAM
     Route: 048
     Dates: start: 20240330, end: 20241006
  2. VENCLEXTA [Suspect]
     Active Substance: VENETOCLAX
     Indication: Chronic lymphocytic leukaemia
     Dosage: FIRST ADMINISTRATION DATE: 2024
     Route: 048
     Dates: end: 20241118
  3. OBINUTUZUMAB [Concomitant]
     Active Substance: OBINUTUZUMAB
     Indication: Chronic lymphocytic leukaemia
     Dosage: FREQUENCY: MONTHLY. FIRST ADMINISTRATION DATE: 2024
     Dates: end: 20240824

REACTIONS (25)
  - Death [Fatal]
  - Depression [Recovering/Resolving]
  - Syncope [Recovering/Resolving]
  - Amnesia [Unknown]
  - Bronchitis [Recovered/Resolved]
  - Aggression [Unknown]
  - Muscle atrophy [Not Recovered/Not Resolved]
  - Choking sensation [Recovering/Resolving]
  - Muscular weakness [Not Recovered/Not Resolved]
  - Fluid retention [Unknown]
  - Injury associated with device [Recovering/Resolving]
  - Weight decreased [Recovering/Resolving]
  - Unevaluable event [Not Recovered/Not Resolved]
  - Inflammation [Unknown]
  - Suicidal ideation [Not Recovered/Not Resolved]
  - Blood sodium decreased [Unknown]
  - Depressed mood [Not Recovered/Not Resolved]
  - General physical condition abnormal [Not Recovered/Not Resolved]
  - Dry mouth [Unknown]
  - Pallor [Recovering/Resolving]
  - Blood potassium decreased [Recovering/Resolving]
  - Blood sodium increased [Recovering/Resolving]
  - Urinary tract infection [Recovering/Resolving]
  - Blood glucose increased [Recovering/Resolving]
  - Unevaluable event [Recovering/Resolving]

NARRATIVE: CASE EVENT DATE: 20240101
